FAERS Safety Report 9244651 (Version 1)
Quarter: 2013Q2

REPORT INFORMATION
  Report Type: Spontaneous
  Country: AU (occurrence: AU)
  Receive Date: 20130422
  Receipt Date: 20130422
  Transmission Date: 20140414
  Serious: Yes (Hospitalization)
  Sender: FDA-Public Use
  Company Number: PHHY2013AU038257

PATIENT
  Sex: 0

DRUGS (3)
  1. ONBREZ [Suspect]
     Indication: CHRONIC OBSTRUCTIVE PULMONARY DISEASE
     Dosage: 300 UG, QD
  2. ONBREZ [Suspect]
     Dosage: 150 UG, BID
  3. ONBREZ [Suspect]
     Dosage: 300 UG, QD

REACTIONS (3)
  - Sepsis [Recovered/Resolved]
  - Nephrolithiasis [Recovered/Resolved]
  - Inappropriate schedule of drug administration [Unknown]
